FAERS Safety Report 13175999 (Version 11)
Quarter: 2018Q3

REPORT INFORMATION
  Report Type: Report from Study
  Country: CA (occurrence: CA)
  Receive Date: 20170201
  Receipt Date: 20180925
  Transmission Date: 20181010
  Serious: Yes (Hospitalization, Other)
  Sender: FDA-Public Use
  Company Number: PHHY2016CA148621

PATIENT
  Age: 39 Year
  Sex: Male
  Weight: 104.31 kg

DRUGS (6)
  1. CLONIDINE. [Suspect]
     Active Substance: CLONIDINE
     Indication: DRUG WITHDRAWAL SYNDROME
     Dosage: 0.1 MG, QID
     Route: 065
     Dates: end: 201612
  2. SANDOSTATIN LAR DEPOT [Suspect]
     Active Substance: OCTREOTIDE ACETATE
     Dosage: 30 MG, Q3W
     Route: 030
  3. SANDOSTATIN LAR DEPOT [Suspect]
     Active Substance: OCTREOTIDE ACETATE
     Indication: CARCINOID TUMOUR
     Dosage: 30 MG, QMO
     Route: 030
     Dates: start: 20160914
  4. SANDOSTATIN LAR DEPOT [Suspect]
     Active Substance: OCTREOTIDE ACETATE
     Dosage: 40 MG, UNK
     Route: 030
  5. COVERSYL [Concomitant]
     Active Substance: PERINDOPRIL
     Indication: PRODUCT USED FOR UNKNOWN INDICATION
     Route: 048
  6. LITHIUM. [Concomitant]
     Active Substance: LITHIUM
     Indication: PRODUCT USED FOR UNKNOWN INDICATION
     Route: 065

REACTIONS (20)
  - Weight decreased [Unknown]
  - Influenza [Unknown]
  - Vomiting [Recovered/Resolved]
  - Nausea [Unknown]
  - Therapeutic response shortened [Unknown]
  - Pain [Unknown]
  - Decreased appetite [Unknown]
  - Headache [Unknown]
  - Metastases to eye [Not Recovered/Not Resolved]
  - Injection site mass [Unknown]
  - Blood pressure decreased [Unknown]
  - Diarrhoea [Unknown]
  - Presyncope [Unknown]
  - Sciatic nerve injury [Unknown]
  - Heart rate decreased [Unknown]
  - Cancer pain [Unknown]
  - Inappropriate schedule of drug administration [Unknown]
  - Inflammation [Unknown]
  - Nausea [Recovered/Resolved]
  - Hepatic lesion [Not Recovered/Not Resolved]

NARRATIVE: CASE EVENT DATE: 2016
